FAERS Safety Report 8396255 (Version 4)
Quarter: 2013Q4

REPORT INFORMATION
  Report Type: Spontaneous
  Country: US (occurrence: US)
  Receive Date: 20120208
  Receipt Date: 20131127
  Transmission Date: 20140711
  Serious: Yes (Other)
  Sender: FDA-Public Use
  Company Number: CHPA2012US000933

PATIENT
  Age: 90 Year
  Sex: Female

DRUGS (9)
  1. EXCEDRIN EXTRA STRENGTH [Suspect]
     Indication: TENDON PAIN
     Dosage: UNK, Q4H
     Route: 048
     Dates: start: 201111, end: 201201
  2. IBUPROFEN [Suspect]
     Indication: TENDON PAIN
     Dosage: 400 MG, Q6H
     Route: 048
     Dates: start: 201111
  3. THYROID THERAPY [Concomitant]
     Indication: THYROID DISORDER
     Dosage: UNK, UNK
     Route: 048
  4. VITAMINS NOS [Concomitant]
     Dosage: UNK, UNK
     Route: 048
  5. PREMARIN [Concomitant]
     Dosage: 0.625 MG, QD
     Route: 048
     Dates: start: 20110916
  6. TYLENOL WITH CODEIN #4 [Concomitant]
     Indication: BACK PAIN
     Dosage: 1 DF, PRN
     Route: 048
     Dates: start: 20110916
  7. SYNTHYROID [Concomitant]
     Dosage: 200 UG, QD
     Dates: start: 20110916
  8. SYNTHYROID [Concomitant]
     Dosage: 50 UNK, UNK
     Route: 048
  9. ATIVAN [Concomitant]
     Dosage: 2 MG, QHS
     Route: 048
     Dates: start: 20110915

REACTIONS (45)
  - Cardiac murmur [Unknown]
  - Anaemia [Unknown]
  - Peripheral arterial occlusive disease [Unknown]
  - Gastrooesophageal reflux disease [Unknown]
  - Palpitations [Recovered/Resolved]
  - Dyspnoea [Unknown]
  - Tachycardia [Recovered/Resolved]
  - Urine viscosity decreased [Unknown]
  - Urine odour abnormal [Unknown]
  - Mean cell haemoglobin decreased [Unknown]
  - Blood creatinine increased [Unknown]
  - Haematocrit decreased [Unknown]
  - Haemoglobin decreased [Unknown]
  - Red blood cell count decreased [Unknown]
  - Mean cell volume abnormal [Unknown]
  - Monocyte count increased [Unknown]
  - Eosinophil count increased [Unknown]
  - Red cell distribution width increased [Unknown]
  - Monofilament pressure perception test abnormal [Unknown]
  - Aortic arteriosclerosis [Unknown]
  - Blood thyroid stimulating hormone decreased [Unknown]
  - Lymphocyte count increased [Unknown]
  - Iron binding capacity total increased [Unknown]
  - Transferrin saturation decreased [Unknown]
  - Neutrophil count decreased [Unknown]
  - Mean cell haemoglobin concentration decreased [Unknown]
  - Iron binding capacity unsaturated increased [Unknown]
  - Blood glucose increased [Unknown]
  - Glycosylated haemoglobin increased [Unknown]
  - Thyroxine increased [Unknown]
  - Vitamin D decreased [Unknown]
  - Blood thyroid stimulating hormone increased [Unknown]
  - Peripheral coldness [Unknown]
  - Asthenia [Recovered/Resolved]
  - Pollakiuria [Recovering/Resolving]
  - Fatigue [Recovered/Resolved]
  - Decreased activity [Unknown]
  - Malaise [Unknown]
  - Decreased appetite [Unknown]
  - Muscle spasms [Unknown]
  - Pallor [Unknown]
  - Insomnia [Unknown]
  - Irritability [Unknown]
  - Nausea [Unknown]
  - Incorrect drug administration duration [Unknown]
